FAERS Safety Report 8502971-0 (Version None)
Quarter: 2012Q3

REPORT INFORMATION
  Report Type: 
  Country: None (occurrence: None)
  Receive Date: 20120711
  Receipt Date: 20120705
  Transmission Date: 20120928
  Serious: Yes (Other)
  Sender: FDA-Public Use
  Company Number: PHHY2012IL055609

PATIENT
  Age: 62 Year
  Sex: Female

DRUGS (6)
  1. MYFORTIC [Suspect]
     Indication: RENAL TRANSPLANT
     Dosage: 720 MG, BID
     Route: 048
  2. COLCHICINE [Concomitant]
  3. CYCLOSPORINE [Concomitant]
  4. ANTIHYPERTENSIVES [Concomitant]
  5. MYFORTIC [Suspect]
     Dosage: 360 MG, BID
     Route: 048
  6. PREDNISONE [Concomitant]

REACTIONS (1)
  - ASCITES [None]
